FAERS Safety Report 20199434 (Version 1)
Quarter: 2021Q4

REPORT INFORMATION
  Report Type: Spontaneous
  Country: US (occurrence: US)
  Receive Date: 20211217
  Receipt Date: 20211217
  Transmission Date: 20220303
  Serious: No
  Sender: FDA-Public Use
  Company Number: US-PACIRA-2021000006

PATIENT
  Sex: Male

DRUGS (2)
  1. EXPAREL [Suspect]
     Active Substance: BUPIVACAINE
     Dosage: 10 ML EXPAREL WITH 15 ML 0.25% BUPIVACAINE
     Route: 065
  2. BUPIVACAINE [Suspect]
     Active Substance: BUPIVACAINE
     Dosage: 15 ML 0.25% BUPIVACAINE WITH 10 ML EXPAREL
     Route: 065

REACTIONS (2)
  - Therapeutic product effect decreased [Unknown]
  - Pain [Unknown]
